FAERS Safety Report 9143776 (Version 1)
Quarter: 2013Q1

REPORT INFORMATION
  Report Type: Spontaneous
  Country: FR (occurrence: FR)
  Receive Date: 20130306
  Receipt Date: 20130306
  Transmission Date: 20140127
  Serious: Yes (Hospitalization)
  Sender: FDA-Public Use
  Company Number: FR-ROCHE-1197323

PATIENT
  Age: 41 Year
  Sex: Male

DRUGS (8)
  1. CYMEVAN [Suspect]
     Indication: PRODUCT USED FOR UNKNOWN INDICATION
     Route: 042
     Dates: start: 20120903, end: 20120913
  2. CELLCEPT [Concomitant]
  3. PROGRAF [Concomitant]
  4. CORTANCYL [Concomitant]
  5. ROVALCYTE [Concomitant]
  6. BACTRIM [Concomitant]
  7. BISOCE [Concomitant]
  8. PRAVASTATINE [Concomitant]

REACTIONS (2)
  - Apathy [Recovered/Resolved]
  - Tremor [Recovered/Resolved]
